FAERS Safety Report 7368551-8 (Version None)
Quarter: 2011Q1

REPORT INFORMATION
  Report Type: 
  Country: None (occurrence: None)
  Receive Date: 20110317
  Receipt Date: 20110317
  Transmission Date: 20110831
  Serious: No
  Sender: FDA-Public Use
  Company Number: None

PATIENT
  Sex: Male

DRUGS (2)
  1. VALACYCLOVIR [Suspect]
     Indication: HERPES SIMPLEX
     Dates: start: 20101103
  2. VALACYCLOVIR [Suspect]
     Indication: HERPES SIMPLEX
     Dates: start: 20091224

REACTIONS (2)
  - HERPES SIMPLEX [None]
  - DRUG INEFFECTIVE [None]
